FAERS Safety Report 4811413-8 (Version None)
Quarter: 2005Q4

REPORT INFORMATION
  Report Type: 
  Country: None (occurrence: None)
  Receive Date: 20051027
  Receipt Date: 20051013
  Transmission Date: 20060501
  Serious: Yes (Other)
  Sender: FDA-Public Use
  Company Number: FR-KINGPHARMUSA00001-K200501360

PATIENT

DRUGS (2)
  1. FLORINEF [Suspect]
     Indication: ORTHOSTATIC HYPOTENSION
  2. DIHYDROERGOTAMINE MESYLATE [Suspect]
     Indication: ORTHOSTATIC HYPOTENSION

REACTIONS (1)
  - CEREBROVASCULAR ACCIDENT [None]
